FAERS Safety Report 9095305 (Version 2)
Quarter: 2013Q1

REPORT INFORMATION
  Report Type: Spontaneous
  Country: AR (occurrence: AR)
  Receive Date: 20130220
  Receipt Date: 20130307
  Transmission Date: 20140127
  Serious: Yes (Other)
  Sender: FDA-Public Use
  Company Number: PHHY2013AR016121

PATIENT
  Sex: Female

DRUGS (1)
  1. EXFORGE [Suspect]
     Indication: HYPERTENSION
     Dosage: 1 DF (80MG VALS AND 5 MG AMLO), QD
     Route: 048
     Dates: start: 20130215

REACTIONS (1)
  - Hypertension [Not Recovered/Not Resolved]
